FAERS Safety Report 15160747 (Version 2)
Quarter: 2018Q3

REPORT INFORMATION
  Report Type: Spontaneous
  Country: JP (occurrence: JP)
  Receive Date: 20180718
  Receipt Date: 20180809
  Transmission Date: 20181010
  Serious: Yes (Other)
  Sender: FDA-Public Use
  Company Number: PHHY2018JP046076

PATIENT
  Age: 88 Year
  Sex: Male

DRUGS (1)
  1. RIVASTACH [Suspect]
     Active Substance: RIVASTIGMINE
     Indication: DEMENTIA ALZHEIMER^S TYPE
     Dosage: 9.5 MG, QD PATCH 10 (CM2)
     Route: 062

REACTIONS (1)
  - Depressed level of consciousness [Unknown]

NARRATIVE: CASE EVENT DATE: 20180711
